FAERS Safety Report 17467713 (Version 1)
Quarter: 2020Q1

REPORT INFORMATION
  Report Type: Spontaneous
  Country: DE (occurrence: DE)
  Receive Date: 20200227
  Receipt Date: 20200227
  Transmission Date: 20200409
  Serious: Yes (Hospitalization)
  Sender: FDA-Public Use
  Company Number: DE-JNJFOC-20200235005

PATIENT
  Age: 61 Year
  Sex: Male
  Weight: 80 kg

DRUGS (4)
  1. DULOXETINE. [Concomitant]
     Active Substance: DULOXETINE
     Dosage: 30 MG, QD
     Route: 048
  2. IBUPROFEN. [Concomitant]
     Active Substance: IBUPROFEN
     Dosage: 600 MG, PRN
     Route: 048
  3. METAMIZOLE [Concomitant]
     Active Substance: METAMIZOLE
     Dosage: 500 MG, PRN
     Route: 048
  4. RIVAROXABAN [Suspect]
     Active Substance: RIVAROXABAN
     Indication: PRODUCT USED FOR UNKNOWN INDICATION
     Dosage: 20 MG, QD
     Route: 048

REACTIONS (4)
  - Dyspnoea exertional [Unknown]
  - General physical health deterioration [Unknown]
  - Asthenia [Unknown]
  - Product monitoring error [Unknown]
